FAERS Safety Report 21373133 (Version 1)
Quarter: 2022Q3

REPORT INFORMATION
  Report Type: Spontaneous
  Country: US (occurrence: US)
  Receive Date: 20220924
  Receipt Date: 20220924
  Transmission Date: 20221027
  Serious: No
  Sender: FDA-Public Use
  Company Number: US-CTI BIOPHARMA-2022US02879

PATIENT
  Age: 77 Year
  Sex: Male
  Weight: 65.86 kg

DRUGS (2)
  1. VONJO [Suspect]
     Active Substance: PACRITINIB
     Indication: Myelodysplastic syndrome
     Dosage: 200 MILLIGRAM, BID
     Dates: start: 20220527
  2. THALOMID [Concomitant]
     Active Substance: THALIDOMIDE

REACTIONS (2)
  - Insomnia [Unknown]
  - Product dose omission issue [Unknown]
